FAERS Safety Report 4963330-0 (Version None)
Quarter: 2006Q2

REPORT INFORMATION
  Report Type: 
  Country: None (occurrence: None)
  Receive Date: 20060404
  Receipt Date: 20060404
  Transmission Date: 20061013
  Serious: Yes (Hospitalization)
  Sender: FDA-Public Use
  Company Number: None

PATIENT
  Age: 76 Year
  Sex: Female
  Weight: 72.5755 kg

DRUGS (9)
  1. MORPHINE SULFATE [Suspect]
     Indication: PAIN MANAGEMENT
  2. MORPHINE SULFATE [Suspect]
     Indication: POSTOPERATIVE CARE
  3. ANETHESIA [Suspect]
     Indication: SURGERY
  4. MOBIC [Concomitant]
  5. ATENOLOL [Concomitant]
  6. HIGH CHOLESTEROL AGENT [Concomitant]
  7. MV1 [Concomitant]
  8. VIT E [Concomitant]
  9. CALCIUM GLUCONATE [Concomitant]

REACTIONS (7)
  - CONFUSIONAL STATE [None]
  - HOSTILITY [None]
  - ILL-DEFINED DISORDER [None]
  - LETHARGY [None]
  - MENTAL STATUS CHANGES POSTOPERATIVE [None]
  - PYREXIA [None]
  - TACHYCARDIA [None]
